FAERS Safety Report 23247713 (Version 3)
Quarter: 2024Q1

REPORT INFORMATION
  Report Type: Spontaneous
  Country: BR (occurrence: BR)
  Receive Date: 20231130
  Receipt Date: 20240320
  Transmission Date: 20240409
  Serious: Yes (Death, Hospitalization, Other)
  Sender: FDA-Public Use
  Company Number: BR-BIOMARINAP-BR-2023-154231

PATIENT

DRUGS (4)
  1. KUVAN [Suspect]
     Active Substance: SAPROPTERIN DIHYDROCHLORIDE
     Indication: Foetal exposure during pregnancy
     Route: 064
  2. IRON [Concomitant]
     Active Substance: IRON
     Indication: Product used for unknown indication
     Route: 064
  3. VITAMINS [Concomitant]
     Active Substance: VITAMINS
     Indication: Product used for unknown indication
     Route: 064
  4. FOLIC ACID [Concomitant]
     Active Substance: FOLIC ACID
     Indication: Product used for unknown indication
     Route: 064

REACTIONS (5)
  - Choking [Fatal]
  - Foetal growth restriction [Not Recovered/Not Resolved]
  - Ventricular septal defect [Recovered/Resolved]
  - Low birth weight baby [Recovering/Resolving]
  - Premature baby [Unknown]
